FAERS Safety Report 8047454-X (Version None)
Quarter: 2012Q1

REPORT INFORMATION
  Report Type: 
  Country: None (occurrence: None)
  Receive Date: 20120116
  Receipt Date: 20120109
  Transmission Date: 20120608
  Serious: Yes (Life-Threatening)
  Sender: FDA-Public Use
  Company Number: FR-UCBSA-049307

PATIENT
  Age: 50 Year
  Sex: Female

DRUGS (6)
  1. EFFEXOR [Suspect]
     Dosage: 75 MG DAILY
     Route: 048
  2. LEXOMIL [Concomitant]
     Dosage: 3 MG DAILY
  3. KEPPRA [Suspect]
     Route: 048
  4. URBANYL [Suspect]
     Route: 048
  5. TEGRETOL [Suspect]
     Route: 048
  6. ZYPREXA [Suspect]
     Dosage: 5 MG DAILY
     Route: 048

REACTIONS (4)
  - SOMNOLENCE [None]
  - CONFUSIONAL STATE [None]
  - HYPONATRAEMIA [None]
  - OVERDOSE [None]
